FAERS Safety Report 4925958-3 (Version None)
Quarter: 2006Q1

REPORT INFORMATION
  Report Type: 
  Country: None (occurrence: None)
  Receive Date: 20060224
  Receipt Date: 20060224
  Transmission Date: 20060701
  Serious: Yes (Other)
  Sender: FDA-Public Use
  Company Number: None

PATIENT
  Age: 23 Year
  Sex: Male
  Weight: 75.7507 kg

DRUGS (2)
  1. SEPTRA DS [Suspect]
     Indication: ABSCESS
     Dosage: DS ORAL BID
     Route: 048
     Dates: start: 20060216, end: 20060223
  2. SEPTRA DS [Suspect]
     Indication: FURUNCLE
     Dosage: DS ORAL BID
     Route: 048
     Dates: start: 20060216, end: 20060223

REACTIONS (1)
  - URTICARIA [None]
